FAERS Safety Report 8586917-5 (Version None)
Quarter: 2012Q3

REPORT INFORMATION
  Report Type: 
  Country: None (occurrence: None)
  Receive Date: 20120810
  Receipt Date: 20120801
  Transmission Date: 20120928
  Serious: Yes (Other)
  Sender: FDA-Public Use
  Company Number: CHPA2012CA011451

PATIENT
  Age: 57 Year
  Sex: Female

DRUGS (2)
  1. DRUG THERAPY NOS [Concomitant]
     Dosage: UNK, UNK
  2. MAALOX ANTACID WITH ANTI-GAS EXTRA-STRENGTH [Suspect]
     Indication: GASTROOESOPHAGEAL REFLUX DISEASE
     Dosage: UNK, QD
     Route: 048

REACTIONS (11)
  - PEPTIC ULCER [None]
  - CONSTIPATION [None]
  - PAIN [None]
  - THERAPEUTIC RESPONSE UNEXPECTED [None]
  - GASTROOESOPHAGEAL REFLUX DISEASE [None]
  - OFF LABEL USE [None]
  - NEUROPATHY PERIPHERAL [None]
  - INTERVERTEBRAL DISC PROTRUSION [None]
  - SCIATICA [None]
  - INTERVERTEBRAL DISC DISORDER [None]
  - INCORRECT DRUG ADMINISTRATION DURATION [None]
